FAERS Safety Report 6473709-6 (Version None)
Quarter: 2009Q4

REPORT INFORMATION
  Report Type: 
  Country: None (occurrence: None)
  Receive Date: 20091204
  Receipt Date: 20091125
  Transmission Date: 20100525
  Serious: Yes (Other)
  Sender: FDA-Public Use
  Company Number: CA-JNJFOC-20090103494

PATIENT
  Sex: Female
  Weight: 154 kg

DRUGS (6)
  1. REMICADE [Suspect]
     Dosage: 5TH DOSE
     Route: 042
  2. REMICADE [Suspect]
     Dosage: 5TH DOSE
     Route: 042
  3. REMICADE [Suspect]
     Indication: CROHN'S DISEASE
     Dosage: DOSE 1 TO 4
     Route: 042
  4. METHOTREXATE [Concomitant]
     Route: 030
  5. CELEBREX [Concomitant]
  6. PREDNISONE [Concomitant]
     Indication: PREMEDICATION

REACTIONS (3)
  - OEDEMA PERIPHERAL [None]
  - RENAL MASS [None]
  - SERUM SICKNESS [None]
